FAERS Safety Report 15941289 (Version 4)
Quarter: 2019Q3

REPORT INFORMATION
  Report Type: Spontaneous
  Country: US (occurrence: US)
  Receive Date: 20190208
  Receipt Date: 20190730
  Transmission Date: 20191004
  Serious: Yes (Other)
  Sender: FDA-Public Use
  Company Number: US-ASTRAZENECA-2018SF65109

PATIENT
  Age: 16530 Day
  Sex: Female
  Weight: 74.8 kg

DRUGS (23)
  1. PRILOSEC [Suspect]
     Active Substance: OMEPRAZOLE MAGNESIUM
     Indication: DYSPEPSIA
     Route: 048
  2. PRILOSEC OTC [Suspect]
     Active Substance: OMEPRAZOLE MAGNESIUM
  3. MULTIVITAMINS [Concomitant]
     Active Substance: VITAMINS
  4. PRILOSEC [Suspect]
     Active Substance: OMEPRAZOLE MAGNESIUM
     Indication: DYSPEPSIA
     Route: 048
     Dates: start: 20090101
  5. PRILOSEC [Suspect]
     Active Substance: OMEPRAZOLE MAGNESIUM
     Indication: DYSPEPSIA
     Dosage: GENERIC
     Route: 065
     Dates: start: 2009, end: 2010
  6. LEXAPRO [Concomitant]
     Active Substance: ESCITALOPRAM OXALATE
  7. GLIMEPIRIDE. [Concomitant]
     Active Substance: GLIMEPIRIDE
  8. FLUCONAZOLE. [Concomitant]
     Active Substance: FLUCONAZOLE
  9. ZOLPIDEM [Concomitant]
     Active Substance: ZOLPIDEM TARTRATE
  10. PRILOSEC [Suspect]
     Active Substance: OMEPRAZOLE MAGNESIUM
     Indication: DYSPEPSIA
     Dosage: GENERIC
     Route: 065
  11. CRESTOR [Concomitant]
     Active Substance: ROSUVASTATIN CALCIUM
  12. AMARYL [Concomitant]
     Active Substance: GLIMEPIRIDE
  13. LEVAQUIN [Concomitant]
     Active Substance: LEVOFLOXACIN
  14. ECOTRIN [Concomitant]
     Active Substance: ASPIRIN
  15. BUPROPION. [Concomitant]
     Active Substance: BUPROPION
  16. LISINOPRIL. [Concomitant]
     Active Substance: LISINOPRIL
  17. LISINOPRIL. [Concomitant]
     Active Substance: LISINOPRIL
  18. HYDROCODONE [Concomitant]
     Active Substance: HYDROCODONE
  19. ARANESP [Concomitant]
     Active Substance: DARBEPOETIN ALFA
  20. NAPROXEN. [Concomitant]
     Active Substance: NAPROXEN
  21. CEFDINIR. [Concomitant]
     Active Substance: CEFDINIR
  22. MELOXICAM. [Concomitant]
     Active Substance: MELOXICAM
  23. METRONIDAZOLE. [Concomitant]
     Active Substance: METRONIDAZOLE

REACTIONS (6)
  - Renal failure [Unknown]
  - Rebound acid hypersecretion [Unknown]
  - Chronic kidney disease [Unknown]
  - Nephrogenic anaemia [Unknown]
  - Renal injury [Unknown]
  - Renal impairment [Unknown]

NARRATIVE: CASE EVENT DATE: 20101029
